FAERS Safety Report 24397392 (Version 2)
Quarter: 2024Q4

REPORT INFORMATION
  Report Type: Report from Study
  Country: CA (occurrence: CA)
  Receive Date: 20241004
  Receipt Date: 20241008
  Transmission Date: 20250114
  Serious: Yes (Other)
  Sender: TEVA
  Company Number: CA-TEVA-VS-3249183

PATIENT
  Age: 84 Year
  Sex: Male

DRUGS (8)
  1. OCTREOTIDE [Suspect]
     Active Substance: OCTREOTIDE
     Indication: Acromegaly
     Route: 030
     Dates: start: 20220629
  2. ATORVASTATIN [Concomitant]
     Active Substance: ATORVASTATIN
     Indication: Product used for unknown indication
     Route: 065
  3. AMLODIPINE [Concomitant]
     Active Substance: AMLODIPINE BESYLATE
     Indication: Product used for unknown indication
     Route: 065
  4. EMPAGLIFLOZIN [Concomitant]
     Active Substance: EMPAGLIFLOZIN
     Indication: Product used for unknown indication
     Route: 065
     Dates: start: 202004
  5. SPIRONOLACTONE [Concomitant]
     Active Substance: SPIRONOLACTONE
     Indication: Product used for unknown indication
     Route: 065
  6. RIVAROXABAN [Concomitant]
     Active Substance: RIVAROXABAN
     Indication: Product used for unknown indication
     Route: 065
  7. BISOPROLOL [Concomitant]
     Active Substance: BISOPROLOL\BISOPROLOL FUMARATE
     Indication: Product used for unknown indication
     Route: 065
  8. SOMAVERT [Concomitant]
     Active Substance: PEGVISOMANT
     Indication: Product used for unknown indication
     Route: 065

REACTIONS (6)
  - Ischaemic stroke [Unknown]
  - Loss of personal independence in daily activities [Unknown]
  - Adverse event [Unknown]
  - Mobility decreased [Unknown]
  - Cognitive disorder [Unknown]
  - Amnesia [Unknown]

NARRATIVE: CASE EVENT DATE: 20240701
